FAERS Safety Report 24820495 (Version 1)
Quarter: 2025Q1

REPORT INFORMATION
  Report Type: Spontaneous
  Country: GB (occurrence: GB)
  Receive Date: 20250108
  Receipt Date: 20250108
  Transmission Date: 20250409
  Serious: Yes (Other)
  Sender: B BRAUN
  Company Number: GB-B.Braun Medical Inc.-2168690

PATIENT
  Age: 53 Year
  Sex: Female
  Weight: 72 kg

DRUGS (5)
  1. METRONIDAZOLE [Suspect]
     Active Substance: METRONIDAZOLE
     Indication: Osteomyelitis
     Dates: start: 20241223
  2. TESTOSTERONE [Concomitant]
     Active Substance: TESTOSTERONE
  3. MESALAMINE [Concomitant]
     Active Substance: MESALAMINE
  4. UTROGESTAN [Concomitant]
     Active Substance: PROGESTERONE
  5. ESTRADIOL [Concomitant]
     Active Substance: ESTRADIOL

REACTIONS (3)
  - Joint swelling [Recovering/Resolving]
  - Off label use [Recovering/Resolving]
  - Peripheral swelling [Recovering/Resolving]
